FAERS Safety Report 17362321 (Version 1)
Quarter: 2020Q1

REPORT INFORMATION
  Report Type: Spontaneous
  Country: FR (occurrence: FR)
  Receive Date: 20200203
  Receipt Date: 20200203
  Transmission Date: 20200409
  Serious: Yes (Other)
  Sender: FDA-Public Use
  Company Number: FR-COVIS PHARMA B.V.-2020COV00050

PATIENT
  Age: 82 Year
  Sex: Female

DRUGS (8)
  1. INORIAL [Concomitant]
     Active Substance: BILASTINE
  2. CYMBALTA [Concomitant]
     Active Substance: DULOXETINE HYDROCHLORIDE
  3. TENORMIN [Concomitant]
     Active Substance: ATENOLOL
  4. LYRICA [Concomitant]
     Active Substance: PREGABALIN
  5. DIAMICRON [Concomitant]
     Active Substance: GLICLAZIDE
  6. THYROXINE [Concomitant]
     Active Substance: LEVOTHYROXINE
  7. RILUTEK [Suspect]
     Active Substance: RILUZOLE
     Indication: POST POLIO SYNDROME
     Dosage: UNK
  8. ULTRA LEVURE [Concomitant]
     Active Substance: SACCHAROMYCES CEREVISIAE

REACTIONS (3)
  - Lymphoma [Unknown]
  - Gamma-glutamyltransferase increased [Unknown]
  - Product availability issue [Unknown]
